FAERS Safety Report 16481643 (Version 1)
Quarter: 2019Q2

REPORT INFORMATION
  Report Type: Spontaneous
  Country: MX (occurrence: MX)
  Receive Date: 20190627
  Receipt Date: 20190627
  Transmission Date: 20190711
  Serious: Yes (Hospitalization, Other)
  Sender: FDA-Public Use
  Company Number: MX-SUN PHARMACEUTICAL INDUSTRIES LTD-2019RR-211644

PATIENT
  Age: 60 Year
  Sex: Female

DRUGS (6)
  1. PACLITAXEL. [Suspect]
     Active Substance: PACLITAXEL
     Indication: BREAST CANCER
     Route: 065
  2. BEVACIZUMAB. [Suspect]
     Active Substance: BEVACIZUMAB
     Indication: METASTASES TO CENTRAL NERVOUS SYSTEM
     Dosage: 1320 MILLIGRAM, TOTAL DOSE
     Route: 065
  3. IXABEPILONE [Suspect]
     Active Substance: IXABEPILONE
     Indication: DISEASE PROGRESSION
     Dosage: UNK
     Route: 065
  4. GEMCITABINE [Suspect]
     Active Substance: GEMCITABINE\GEMCITABINE HYDROCHLORIDE
     Indication: METASTASES TO CENTRAL NERVOUS SYSTEM
     Dosage: 1000 MILLIGRAM, TOTAL DOSE
     Route: 065
  5. CARBOPLATIN. [Suspect]
     Active Substance: CARBOPLATIN
     Indication: METASTASES TO CENTRAL NERVOUS SYSTEM
     Dosage: 350 MILLIGRAM, TOTAL DOSE
     Route: 065
  6. CYCLOPHOSPHAMIDE. [Suspect]
     Active Substance: CYCLOPHOSPHAMIDE
     Indication: BREAST CANCER
     Dosage: 4 CYCLES
     Route: 065

REACTIONS (6)
  - Drug eruption [Unknown]
  - Seizure [Unknown]
  - Disease progression [Unknown]
  - Mental status changes [Unknown]
  - Vomiting [Unknown]
  - Posterior reversible encephalopathy syndrome [Unknown]
